FAERS Safety Report 9792167 (Version 3)
Quarter: 2014Q1

REPORT INFORMATION
  Report Type: Spontaneous
  Country: US (occurrence: None)
  Receive Date: 20131230
  Receipt Date: 20140221
  Transmission Date: 20141002
  Serious: Yes (Other)
  Sender: FDA-Public Use
  Company Number: 2013SA134300

PATIENT
  Age: 65 Year
  Sex: Male
  Weight: 102.05 kg

DRUGS (7)
  1. GOLD BOND FOOT EXTRA STRENGTH [Suspect]
     Indication: NEURALGIA
     Dosage: GOLD BOND PAIN RELIEVING FOOT CREAM
     Dates: end: 20131029
  2. GOLD BOND FOOT EXTRA STRENGTH [Suspect]
     Indication: PAIN IN EXTREMITY
     Dosage: GOLD BOND PAIN RELIEVING FOOT CREAM
     Dates: end: 20131029
  3. GLUCOPHAGE [Concomitant]
  4. AMITRIPTYLINE [Concomitant]
  5. HUMALOG [Concomitant]
  6. INSULIN PEN NOS [Concomitant]
  7. SULFADIAZINE [Concomitant]

REACTIONS (5)
  - Chemical injury [None]
  - Pain in extremity [None]
  - Blister [None]
  - Pain [None]
  - Bedridden [None]
